FAERS Safety Report 19365516 (Version 1)
Quarter: 2021Q2

REPORT INFORMATION
  Report Type: Spontaneous
  Country: US (occurrence: US)
  Receive Date: 20210603
  Receipt Date: 20210603
  Transmission Date: 20210717
  Serious: Yes (Other)
  Sender: FDA-Public Use
  Company Number: None

PATIENT
  Age: 66 Year
  Sex: Male
  Weight: 96.75 kg

DRUGS (22)
  1. REPATHA [Concomitant]
     Active Substance: EVOLOCUMAB
  2. FIBER/PSYLLIUM [Concomitant]
  3. TART CHERRY JUICE [Concomitant]
  4. TRIAMCINOLONE ACETONIDE CREAM [Concomitant]
     Active Substance: TRIAMCINOLONE ACETONIDE
  5. VITAMIN B12 [Concomitant]
     Active Substance: CYANOCOBALAMIN
  6. LORATADINE. [Concomitant]
     Active Substance: LORATADINE
  7. ANTIHISTAMINE ALLERFEX [Concomitant]
  8. VASCEPA [Suspect]
     Active Substance: ICOSAPENT ETHYL
     Indication: BLOOD CHOLESTEROL INCREASED
     Route: 048
     Dates: start: 20201207, end: 20210128
  9. METFORMIN [Concomitant]
     Active Substance: METFORMIN HYDROCHLORIDE
  10. VICTOZA [Concomitant]
     Active Substance: LIRAGLUTIDE
  11. LISINOPRIL. [Concomitant]
     Active Substance: LISINOPRIL
  12. FISH OIL [Concomitant]
     Active Substance: FISH OIL
  13. C [Concomitant]
  14. MULTIVITAMIN WITH MINERALS [Concomitant]
     Active Substance: MINERALS\VITAMINS
  15. JARDIANCE [Concomitant]
     Active Substance: EMPAGLIFLOZIN
  16. VITAMIN D3 [Concomitant]
     Active Substance: CHOLECALCIFEROL
  17. TURMERIC [Concomitant]
     Active Substance: HERBALS\TURMERIC
  18. COLLAGEN [Concomitant]
     Active Substance: COLLAGEN
  19. PEPTIDES [Concomitant]
  20. GLUCOSAMINE WITH MSM/CHONDROITON [Concomitant]
  21. OMEGA?3 ACIDS [Concomitant]
     Active Substance: OMEGA-3 FATTY ACIDS
  22. ANTIHISTAMINE ALLERCLEAR [Concomitant]

REACTIONS (2)
  - Lip swelling [None]
  - Rash [None]

NARRATIVE: CASE EVENT DATE: 20210128
